FAERS Safety Report 20104425 (Version 5)
Quarter: 2022Q1

REPORT INFORMATION
  Report Type: Spontaneous
  Country: GB (occurrence: None)
  Receive Date: 20211123
  Receipt Date: 20220114
  Transmission Date: 20220423
  Serious: Yes (Life-Threatening, Other)
  Sender: FDA-Public Use
  Company Number: 2021A809939

PATIENT
  Sex: Female

DRUGS (3)
  1. ASTRAZENECA COVID-19 VACCINE [Suspect]
     Active Substance: AZD-1222
     Dosage: DOSE 1
     Route: 030
  2. ASTRAZENECA COVID-19 VACCINE [Suspect]
     Active Substance: AZD-1222
     Dosage: DOSE 2
     Route: 030
  3. OLAPARIB [Suspect]
     Active Substance: OLAPARIB
     Indication: Ovarian cancer
     Route: 048

REACTIONS (3)
  - Cardiac failure [Not Recovered/Not Resolved]
  - Ovarian cancer recurrent [Not Recovered/Not Resolved]
  - Illness [Unknown]
